FAERS Safety Report 5271241-9 (Version None)
Quarter: 2007Q1

REPORT INFORMATION
  Report Type: 
  Country: None (occurrence: None)
  Receive Date: 20061214
  Receipt Date: 20061011
  Transmission Date: 20070707
  Serious: Yes (Hospitalization, Disabling)
  Sender: FDA-Public Use
  Company Number: 2005120489

PATIENT
  Age: 55 Year
  Sex: Female
  Weight: 61.2356 kg

DRUGS (2)
  1. BEXTRA [Suspect]
     Indication: CARPAL TUNNEL SYNDROME
     Dosage: 20 MG (20 MG,1 IN 1 D)
     Dates: start: 20030410
  2. BEXTRA [Suspect]
     Indication: OSTEOARTHRITIS
     Dosage: 20 MG (20 MG,1 IN 1 D)
     Dates: start: 20030410

REACTIONS (2)
  - CARDIAC FAILURE CONGESTIVE [None]
  - RENAL FAILURE [None]
